FAERS Safety Report 25343493 (Version 1)
Quarter: 2025Q2

REPORT INFORMATION
  Report Type: Spontaneous
  Country: FR (occurrence: FR)
  Receive Date: 20250521
  Receipt Date: 20250521
  Transmission Date: 20250717
  Serious: Yes (Other)
  Sender: EISAI
  Company Number: FR-Eisai-EC-2025-189184

PATIENT
  Age: 49 Year
  Sex: Female
  Weight: 67 kg

DRUGS (7)
  1. LENVATINIB [Suspect]
     Active Substance: LENVATINIB
     Indication: Endometrial cancer
     Dates: start: 202306
  2. LENVATINIB [Suspect]
     Active Substance: LENVATINIB
  3. PEMBROLIZUMAB [Suspect]
     Active Substance: PEMBROLIZUMAB
     Indication: Endometrial cancer
     Dates: start: 20220116, end: 202303
  4. PEMBROLIZUMAB [Suspect]
     Active Substance: PEMBROLIZUMAB
     Dates: start: 202306
  5. METHOTREXATE [Concomitant]
     Active Substance: METHOTREXATE
     Indication: Immune-mediated arthritis
  6. METHOTREXATE [Concomitant]
     Active Substance: METHOTREXATE
     Dates: start: 202306
  7. VIBOSTOLIMAB [Concomitant]
     Active Substance: VIBOSTOLIMAB
     Indication: Endometrial cancer

REACTIONS (6)
  - Adrenal insufficiency [Unknown]
  - Myositis [Unknown]
  - Periostitis [Unknown]
  - Pruritus [Unknown]
  - Rheumatoid arthritis [Unknown]
  - Bone development abnormal [Not Recovered/Not Resolved]
